FAERS Safety Report 11377171 (Version 1)
Quarter: 2015Q3

REPORT INFORMATION
  Report Type: Spontaneous
  Country: FR (occurrence: FR)
  Receive Date: 20150813
  Receipt Date: 20150813
  Transmission Date: 20151125
  Serious: Yes (Congenital Anomaly, Other)
  Sender: FDA-Public Use
  Company Number: FR-ABBVIE-15P-056-1443846-00

PATIENT
  Sex: Female

DRUGS (1)
  1. DEPAKINE CHRONO [Suspect]
     Active Substance: VALPROATE SODIUM
     Indication: MATERNAL EXPOSURE TIMING UNSPECIFIED
     Route: 064

REACTIONS (16)
  - Myopia [Unknown]
  - Psychomotor skills impaired [Not Recovered/Not Resolved]
  - Tibial torsion [Unknown]
  - Foetal exposure during pregnancy [Unknown]
  - Benign congenital hypotonia [Unknown]
  - Unevaluable event [Unknown]
  - Marfan^s syndrome [Not Recovered/Not Resolved]
  - Visual impairment [Unknown]
  - Gait disturbance [Unknown]
  - Aggression [Unknown]
  - Psychomotor skills impaired [Unknown]
  - Urinary tract infection [Unknown]
  - Arachnodactyly [Not Recovered/Not Resolved]
  - Balance disorder [Unknown]
  - Kyphosis [Unknown]
  - Fatigue [Unknown]

NARRATIVE: CASE EVENT DATE: 20020320
